FAERS Safety Report 4471245-X (Version None)
Quarter: 2004Q4

REPORT INFORMATION
  Report Type: 
  Country: None (occurrence: None)
  Receive Date: 20041011
  Receipt Date: 20041001
  Transmission Date: 20050328
  Serious: Yes (Hospitalization)
  Sender: FDA-Public Use
  Company Number: SE-MERCK-0410SWE00004

PATIENT
  Age: 58 Year
  Sex: Female

DRUGS (1)
  1. SINGULAIR [Suspect]
     Indication: ASTHMA
     Route: 048
     Dates: start: 20010528, end: 20020625

REACTIONS (9)
  - ALLERGIC GRANULOMATOUS ANGIITIS [None]
  - BACK PAIN [None]
  - HYPOAESTHESIA [None]
  - MICTURITION DISORDER [None]
  - MUSCULAR WEAKNESS [None]
  - PERONEAL NERVE PALSY [None]
  - POLYNEUROPATHY [None]
  - SENSORY DISTURBANCE [None]
  - VASCULITIS [None]
